FAERS Safety Report 9629492 (Version 1)
Quarter: 2013Q4

REPORT INFORMATION
  Report Type: Spontaneous
  Country: US (occurrence: US)
  Receive Date: 20131017
  Receipt Date: 20131017
  Transmission Date: 20140711
  Serious: Yes (Other)
  Sender: FDA-Public Use
  Company Number: US-ASTRAZENECA-2013SE75168

PATIENT
  Sex: Female

DRUGS (2)
  1. BRILINTA [Suspect]
     Route: 048
     Dates: end: 2013
  2. CLOPIDOGREL [Concomitant]

REACTIONS (1)
  - Haematochezia [Unknown]
